FAERS Safety Report 5153324-7 (Version None)
Quarter: 2006Q4

REPORT INFORMATION
  Report Type: 
  Country: None (occurrence: None)
  Receive Date: 20061116
  Receipt Date: 20061116
  Transmission Date: 20070319
  Serious: Yes (Hospitalization)
  Sender: FDA-Public Use
  Company Number: None

PATIENT
  Age: 82 Year
  Sex: Male
  Weight: 98.8 kg

DRUGS (4)
  1. FLECAINIDE ACETATE [Suspect]
     Indication: ATRIAL FIBRILLATION
     Dosage: 300MG QD PO
     Route: 048
     Dates: start: 20060621, end: 20060629
  2. ATENOLOL [Suspect]
     Indication: ATRIAL FIBRILLATION
     Dosage: 125MG  QD  PO
     Route: 048
     Dates: start: 20060628, end: 20060628
  3. WARFARIN SODIUM [Concomitant]
  4. ASPIRIN [Concomitant]

REACTIONS (9)
  - ATRIAL FIBRILLATION [None]
  - ATRIAL FLUTTER [None]
  - DRUG PRESCRIBING ERROR [None]
  - DYSPNOEA [None]
  - FEELING HOT [None]
  - LOSS OF CONSCIOUSNESS [None]
  - NAUSEA [None]
  - SYNCOPE [None]
  - TREATMENT NONCOMPLIANCE [None]
